FAERS Safety Report 12292444 (Version 1)
Quarter: 2016Q2

REPORT INFORMATION
  Report Type: Report from Study
  Country: US (occurrence: US)
  Receive Date: 20160421
  Receipt Date: 20160421
  Transmission Date: 20160815
  Serious: No
  Sender: FDA-Public Use
  Company Number: US-AMGEN-USASL2016017394

PATIENT
  Age: 70 Year
  Sex: Female

DRUGS (1)
  1. REPATHA [Suspect]
     Active Substance: EVOLOCUMAB
     Indication: HYPERCHOLESTEROLAEMIA
     Dosage: 140 MG, Q2WK
     Route: 065
     Dates: start: 20160203

REACTIONS (5)
  - Rhinorrhoea [Unknown]
  - Inappropriate schedule of drug administration [Unknown]
  - Heart rate irregular [Unknown]
  - Palpitations [Unknown]
  - Asthenopia [Unknown]

NARRATIVE: CASE EVENT DATE: 201602
